FAERS Safety Report 5844502-X (Version None)
Quarter: 2008Q3

REPORT INFORMATION
  Report Type: 
  Country: None (occurrence: None)
  Receive Date: 20080811
  Receipt Date: 20080725
  Transmission Date: 20090109
  Serious: Yes (Other)
  Sender: FDA-Public Use
  Company Number: 8035154

PATIENT
  Age: 5 Year
  Sex: Male

DRUGS (1)
  1. THEOPHYLLINE [Suspect]
     Dosage: PO
     Route: 048

REACTIONS (3)
  - GRAND MAL CONVULSION [None]
  - LOSS OF CONSCIOUSNESS [None]
  - STATUS EPILEPTICUS [None]
